FAERS Safety Report 10370413 (Version 2)
Quarter: 2014Q3

REPORT INFORMATION
  Report Type: Spontaneous
  Country: US (occurrence: None)
  Receive Date: 20140805
  Receipt Date: 20140918
  Transmission Date: 20150326
  Serious: Yes (Other)
  Sender: FDA-Public Use
  Company Number: 2014VER00124

PATIENT
  Age: 15 Year
  Sex: Male

DRUGS (2)
  1. MYORISAN [Suspect]
     Active Substance: ISOTRETINOIN
     Indication: ACNE CYSTIC
     Dosage: UNK
     Dates: start: 20140502, end: 20140721
  2. UNSPECIFIED DIETARY SUPPLEMENTS [Concomitant]

REACTIONS (4)
  - Mood swings [None]
  - Headache [None]
  - Anger [None]
  - Tearfulness [None]

NARRATIVE: CASE EVENT DATE: 20140606
